FAERS Safety Report 4969528-X (Version None)
Quarter: 2006Q2

REPORT INFORMATION
  Report Type: 
  Country: None (occurrence: None)
  Receive Date: 20060406
  Receipt Date: 20060327
  Transmission Date: 20061013
  Serious: Yes (Hospitalization)
  Sender: FDA-Public Use
  Company Number: HQ8204408NOV2001

PATIENT
  Age: 68 Year
  Sex: Female
  Weight: 108.05 kg

DRUGS (4)
  1. MYLOTARG [Suspect]
     Indication: ACUTE MYELOID LEUKAEMIA
     Dosage: 19 MG ONE TIME PER ONE DOSE; INTRAVENOUS
     Route: 042
     Dates: start: 20011029, end: 20011029
  2. MYLOTARG [Suspect]
     Indication: ACUTE MYELOID LEUKAEMIA
     Dosage: 19 MG ONE TIME PER ONE DOSE; INTRAVENOUS
     Route: 042
     Dates: start: 20011112, end: 20011112
  3. ESTRADERM [Concomitant]
  4. SYNTHROID [Concomitant]

REACTIONS (8)
  - APHASIA [None]
  - BLOOD CULTURE POSITIVE [None]
  - CEREBRAL INFARCTION [None]
  - FEBRILE NEUTROPENIA [None]
  - FEELING ABNORMAL [None]
  - STAPHYLOCOCCAL BACTERAEMIA [None]
  - STAPHYLOCOCCAL SEPSIS [None]
  - THROMBOCYTOPENIA [None]
